FAERS Safety Report 17166016 (Version 1)
Quarter: 2019Q4

REPORT INFORMATION
  Report Type: Report from Study
  Country: US (occurrence: US)
  Receive Date: 20191217
  Receipt Date: 20191217
  Transmission Date: 20200122
  Serious: Yes (Hospitalization, Other)
  Sender: FDA-Public Use
  Company Number: US-SHIRE-US201943209

PATIENT

DRUGS (1)
  1. NATPARA (PARATHYROID HORMONE) [Suspect]
     Active Substance: PARATHYROID HORMONE
     Indication: PRODUCT USED FOR UNKNOWN INDICATION
     Route: 065

REACTIONS (18)
  - Diarrhoea [Unknown]
  - Recalled product [Unknown]
  - Nausea [Unknown]
  - Bone pain [Unknown]
  - Osteoporosis [Unknown]
  - Feeling abnormal [Unknown]
  - Paraesthesia [Unknown]
  - Hypoaesthesia [Unknown]
  - Depression [Unknown]
  - Tetany [Unknown]
  - Anxiety [Unknown]
  - Hospitalisation [Unknown]
  - Nephrolithiasis [Unknown]
  - Fatigue [Unknown]
  - Palpitations [Unknown]
  - Myalgia [Unknown]
  - Muscle spasms [Unknown]
  - Migraine [Unknown]
